FAERS Safety Report 7037214-0 (Version None)
Quarter: 2010Q4

REPORT INFORMATION
  Report Type: 
  Country: None (occurrence: None)
  Receive Date: 20101011
  Receipt Date: 20101004
  Transmission Date: 20110411
  Serious: Yes (Hospitalization, Disabling)
  Sender: FDA-Public Use
  Company Number: US-ROCHE-724336

PATIENT
  Sex: Male
  Weight: 150.4 kg

DRUGS (12)
  1. ACTEMRA [Suspect]
     Dosage: FORM: INFUSION
     Route: 042
     Dates: start: 20100818
  2. ACTEMRA [Suspect]
     Route: 042
     Dates: end: 20100901
  3. PREDNISONE [Concomitant]
     Route: 048
  4. LASIX [Concomitant]
  5. CRESTOR [Concomitant]
     Indication: LIPIDS INCREASED
     Route: 048
  6. ZESTRIL [Concomitant]
  7. PLAVIX [Concomitant]
  8. TOPRAL [Concomitant]
  9. GLUCOVANCE [Concomitant]
  10. LANTUS [Concomitant]
  11. PEPCID [Concomitant]
  12. CARAFATE [Concomitant]

REACTIONS (3)
  - BACK PAIN [None]
  - MYALGIA [None]
  - UPPER GASTROINTESTINAL HAEMORRHAGE [None]
